FAERS Safety Report 8151020-5 (Version None)
Quarter: 2012Q1

REPORT INFORMATION
  Report Type: 
  Country: None (occurrence: None)
  Receive Date: 20120220
  Receipt Date: 20120216
  Transmission Date: 20120608
  Serious: Yes (Death, Hospitalization)
  Sender: FDA-Public Use
  Company Number: US-BRISTOL-MYERS SQUIBB COMPANY-16245326

PATIENT
  Age: 52 Year
  Sex: Female
  Weight: 76 kg

DRUGS (6)
  1. LEUKINE [Suspect]
     Indication: MALIGNANT MELANOMA
     Dosage: LAST ADMINISTERED DATE 20NOV11
     Route: 058
     Dates: start: 20110624
  2. EFFEXOR [Concomitant]
  3. ACETAMINOPHEN [Concomitant]
     Indication: PAIN
  4. SYNTHROID [Concomitant]
  5. IPILIMUMAB [Suspect]
     Indication: MALIGNANT MELANOMA
     Dosage: LAST ADMINISTERED DOSE 18NOV11 ON DY1 Q12WKS
     Route: 042
     Dates: start: 20110624
  6. MULTI-VITAMIN [Concomitant]

REACTIONS (6)
  - PYREXIA [None]
  - COUGH [None]
  - ADRENAL INSUFFICIENCY [None]
  - CARDIAC ARREST [None]
  - SEPSIS [None]
  - OROPHARYNGEAL PAIN [None]
